FAERS Safety Report 14606921 (Version 2)
Quarter: 2018Q1

REPORT INFORMATION
  Report Type: Spontaneous
  Country: US (occurrence: US)
  Receive Date: 20180307
  Receipt Date: 20180322
  Transmission Date: 20180509
  Serious: Yes (Other)
  Sender: FDA-Public Use
  Company Number: US-PROCTER_AND_GAMBLE-GS18023714

PATIENT
  Age: 38 Year
  Sex: Male
  Weight: 63.49 kg

DRUGS (1)
  1. CREST PRO-HEALTH RINSE [Suspect]
     Active Substance: CETYLPYRIDINIUM CHLORIDE
     Indication: DENTAL DISORDER PROPHYLAXIS
     Dosage: 1 CAP, 3 TIMES/DAY
     Route: 002
     Dates: start: 20140115, end: 20161115

REACTIONS (7)
  - Inappropriate schedule of drug administration [Unknown]
  - Dental caries [Recovered/Resolved]
  - Dental examination abnormal [Recovered/Resolved]
  - Toothache [Recovered/Resolved]
  - Bone loss [Recovered/Resolved]
  - Drug ineffective [Unknown]
  - Tooth infection [Recovered/Resolved]

NARRATIVE: CASE EVENT DATE: 201611
